FAERS Safety Report 14295640 (Version 1)
Quarter: 2017Q4

REPORT INFORMATION
  Report Type: Spontaneous
  Country: ME (occurrence: ME)
  Receive Date: 20171218
  Receipt Date: 20171218
  Transmission Date: 20180321
  Serious: Yes (Hospitalization, Other)
  Sender: FDA-Public Use
  Company Number: ME-009507513-1712MNE005655

PATIENT
  Age: 31 Year
  Sex: Female

DRUGS (3)
  1. CLOMID [Suspect]
     Active Substance: CLOMIPHENE CITRATE
     Indication: OVULATION INDUCTION
  2. PUREGON [FOLLITROPIN BETA] [Suspect]
     Active Substance: FOLLITROPIN
     Indication: OVULATION INDUCTION
  3. PREGNYL [Suspect]
     Active Substance: CHORIOGONADOTROPIN ALFA
     Indication: OVULATION INDUCTION

REACTIONS (1)
  - Ectopic pregnancy [Recovered/Resolved]
